FAERS Safety Report 6368352-3 (Version None)
Quarter: 2009Q3

REPORT INFORMATION
  Report Type: 
  Country: None (occurrence: None)
  Receive Date: 20090909
  Receipt Date: 20090609
  Transmission Date: 20100115
  Serious: No
  Sender: FDA-Public Use
  Company Number: 001003

PATIENT
  Sex: Female
  Weight: 52.2 kg

DRUGS (4)
  1. ROTIGOTINE [Suspect]
     Indication: BALANCE DISORDER
     Dosage: (4 MG QD TRANSDERMAL), (6 MG QD TRANSDERMAL)
     Route: 062
     Dates: start: 20080116
  2. ROTIGOTINE [Suspect]
     Indication: PARKINSON'S DISEASE
     Dosage: (4 MG QD TRANSDERMAL), (6 MG QD TRANSDERMAL)
     Route: 062
     Dates: start: 20080116
  3. SINEMET [Concomitant]
  4. HYDROCHLOROTHIAZIDE [Concomitant]

REACTIONS (8)
  - APPLICATION SITE BURN [None]
  - APPLICATION SITE PRURITUS [None]
  - DRUG INEFFECTIVE [None]
  - DYSKINESIA [None]
  - EXPIRED DRUG ADMINISTERED [None]
  - MALAISE [None]
  - PRURITUS [None]
  - RASH [None]
